FAERS Safety Report 5105486-5 (Version None)
Quarter: 2006Q3

REPORT INFORMATION
  Report Type: 
  Country: None (occurrence: None)
  Receive Date: 20060915
  Receipt Date: 20060906
  Transmission Date: 20061208
  Serious: Yes (Other)
  Sender: FDA-Public Use
  Company Number: PHHO2006BR15140

PATIENT
  Age: 62 Year
  Sex: Female
  Weight: 65 kg

DRUGS (2)
  1. ZELMAC / HTF 919A [Suspect]
     Indication: COLITIS
     Route: 048
     Dates: start: 20050101
  2. LESCOL XL [Suspect]
     Dosage: 80 MG, QD
     Route: 048
     Dates: start: 20060808

REACTIONS (10)
  - ABDOMINAL PAIN [None]
  - CHILLS [None]
  - CHROMATURIA [None]
  - DIZZINESS [None]
  - DYSPNOEA [None]
  - DYSSTASIA [None]
  - FATIGUE [None]
  - HEPATITIS [None]
  - PAIN [None]
  - TREMOR [None]
